FAERS Safety Report 4761390-3 (Version None)
Quarter: 2005Q3

REPORT INFORMATION
  Report Type: 
  Country: None (occurrence: None)
  Receive Date: 20050906
  Receipt Date: 20050812
  Transmission Date: 20060218
  Serious: Yes (Life-Threatening)
  Sender: FDA-Public Use
  Company Number: BE-AMGEN-UK146425

PATIENT
  Sex: Female
  Weight: 55 kg

DRUGS (9)
  1. PALIFERMIN [Suspect]
     Indication: MUCOSAL INFLAMMATION
     Route: 042
     Dates: start: 20050804, end: 20050810
  2. MELPHALAN [Suspect]
     Route: 042
     Dates: start: 20050808, end: 20050808
  3. CIPROXIN [Suspect]
     Route: 048
     Dates: start: 20050808
  4. ACYCLOVIR [Concomitant]
     Route: 048
     Dates: start: 20050809
  5. FLUCONAZOLE [Concomitant]
     Route: 048
     Dates: start: 20050809
  6. DEXAMETHASONE [Concomitant]
     Route: 042
     Dates: start: 20050808, end: 20050809
  7. ALIZAPRIDE [Concomitant]
     Route: 042
     Dates: start: 20050809
  8. HEPARIN [Concomitant]
     Route: 058
     Dates: start: 20050530
  9. TROPISETRON [Concomitant]
     Route: 042
     Dates: start: 20050808, end: 20050810

REACTIONS (4)
  - DYSPHAGIA [None]
  - OEDEMA MUCOSAL [None]
  - RASH [None]
  - TONGUE DISORDER [None]
